FAERS Safety Report 9173564 (Version 2)
Quarter: 2013Q1

REPORT INFORMATION
  Report Type: Spontaneous
  Country: US (occurrence: None)
  Receive Date: 20130314
  Receipt Date: 20130328
  Transmission Date: 20140127
  Serious: Yes (Other)
  Sender: FDA-Public Use
  Company Number: JPI-P-030354

PATIENT
  Age: 68 Year
  Sex: Male
  Weight: 127.01 kg

DRUGS (25)
  1. XYREM (500 MILLIGRAM/MILLILITERS, SOLUTION) (SODIUM OXYBATE) [Suspect]
     Indication: NARCOLEPSY
     Route: 048
     Dates: start: 2005, end: 201206
  2. LISINOPRIL [Concomitant]
  3. VENLAFAXINE HCL [Concomitant]
  4. FINASTERIDE [Concomitant]
  5. TAMSULOSIN [Concomitant]
  6. PRAMIPEXOLE [Concomitant]
  7. OMEPRAZOLE [Concomitant]
  8. ZAFIRLUKAST [Concomitant]
  9. METHYLPHENIDATE HYDROCHLORIDE ER [Concomitant]
  10. METHYLPHENIDATE [Concomitant]
  11. VERAPAMIL [Concomitant]
  12. DOXEPIN [Concomitant]
  13. SALAGEL [Concomitant]
  14. MOMETASONE FUROATE [Concomitant]
  15. ACETAMINOPHEN [Concomitant]
  16. ASPIRIN [Concomitant]
  17. CALCIUM CITRATE/VITAMIN D [Concomitant]
  18. FISH OIL [Concomitant]
  19. GLUCOSAMINE CHONDROITIN [Concomitant]
  20. GUAIFENESIN [Concomitant]
  21. LACTAID [Concomitant]
  22. RICOLA SUGAR FREE THROAT DROPS [Concomitant]
  23. VITAMIN D [Concomitant]
  24. ADVIL (TABLETS) [Concomitant]
  25. ALLERTEC [Concomitant]

REACTIONS (2)
  - Diabetes mellitus [None]
  - Sinusitis [None]
